FAERS Safety Report 17105991 (Version 4)
Quarter: 2020Q1

REPORT INFORMATION
  Report Type: Spontaneous
  Country: US (occurrence: US)
  Receive Date: 20191203
  Receipt Date: 20200210
  Transmission Date: 20200409
  Serious: No
  Sender: FDA-Public Use
  Company Number: US-ASTRAZENECA-2019SF70711

PATIENT
  Age: 44 Year
  Sex: Female
  Weight: 79.4 kg

DRUGS (29)
  1. CRESTOR [Suspect]
     Active Substance: ROSUVASTATIN CALCIUM
     Indication: BLOOD CHOLESTEROL
     Route: 048
  2. MAGNESIUM [Concomitant]
     Active Substance: MAGNESIUM
     Indication: CARDIAC DISORDER
     Dosage: 500
     Route: 048
  3. BUPROPION. [Concomitant]
     Active Substance: BUPROPION
     Indication: DEPRESSION
     Route: 048
  4. IBUPROFEN. [Concomitant]
     Active Substance: IBUPROFEN
     Dosage: 800.0MG AS REQUIRED
     Route: 048
  5. LISINOPRIL. [Concomitant]
     Active Substance: LISINOPRIL
     Indication: HYPERTENSION
     Route: 048
  6. DOCUSATE [Concomitant]
     Active Substance: DOCUSATE
     Indication: CONSTIPATION
     Route: 048
  7. BYDUREON BCISE [Suspect]
     Active Substance: EXENATIDE
     Indication: TYPE 2 DIABETES MELLITUS
     Route: 058
     Dates: start: 2019
  8. PROBIOTIC WITH TURMERIC [Concomitant]
     Indication: ABDOMINAL DISCOMFORT
     Route: 048
  9. BIOTIN [Concomitant]
     Active Substance: BIOTIN
     Indication: SKIN DISORDER
     Route: 048
  10. MILK THISTLE [Concomitant]
     Active Substance: DIETARY SUPPLEMENT\HERBALS\MILK THISTLE
     Indication: LIVER DISORDER
     Route: 048
     Dates: start: 201910
  11. XIGDUO XR [Suspect]
     Active Substance: DAPAGLIFLOZIN PROPANEDIOL\METFORMIN HYDROCHLORIDE
     Indication: TYPE 2 DIABETES MELLITUS
     Dosage: 5MG / 1000MG TWICE DAILY
     Route: 048
     Dates: start: 201906
  12. FENUGREEK [Concomitant]
     Active Substance: FENUGREEK SEED
     Indication: IMMUNE SYSTEM DISORDER
     Route: 048
  13. JARDIANCE [Concomitant]
     Active Substance: EMPAGLIFLOZIN
  14. COREG [Concomitant]
     Active Substance: CARVEDILOL
     Indication: BLOOD PRESSURE MEASUREMENT
     Route: 048
     Dates: end: 2016
  15. CRESTOR [Suspect]
     Active Substance: ROSUVASTATIN CALCIUM
     Indication: BLOOD CHOLESTEROL
     Route: 048
  16. ASPIRIN. [Concomitant]
     Active Substance: ASPIRIN
     Indication: CARDIAC DISORDER
     Route: 048
  17. VITAMIN C [Concomitant]
     Active Substance: ASCORBIC ACID
     Indication: AUTOIMMUNE DISORDER
     Route: 048
  18. SUPER B COMPLEX [Concomitant]
     Active Substance: CYANOCOBALAMIN\DEXPANTHENOL\NIACINAMIDE\PYRIDOXINE HYDROCHLORIDE\RIBOFLAVIN 5^-PHOSPHATE SODIUM\THIAMINE HYDROCHLORIDE\VITAMIN B COMPLEX
     Indication: DEPRESSION
     Route: 048
  19. COCONUT OIL [Concomitant]
     Active Substance: COCONUT OIL
  20. CRESTOR [Suspect]
     Active Substance: ROSUVASTATIN CALCIUM
     Indication: BLOOD CHOLESTEROL
     Route: 048
  21. VITAMIN D3 [Concomitant]
     Active Substance: CHOLECALCIFEROL
     Indication: VITAMIN D DEFICIENCY
     Route: 048
  22. ROSUVASTATIN. [Concomitant]
     Active Substance: ROSUVASTATIN
     Indication: BLOOD CHOLESTEROL
     Route: 048
  23. BUPROPION. [Concomitant]
     Active Substance: BUPROPION
     Indication: ANXIETY
     Route: 048
  24. FENOFIBRATE. [Concomitant]
     Active Substance: FENOFIBRATE
     Indication: BLOOD TRIGLYCERIDES INCREASED
     Route: 048
  25. FENOFIBRATE. [Concomitant]
     Active Substance: FENOFIBRATE
     Indication: BLOOD CHOLESTEROL
     Route: 048
  26. CRANBERRY. [Concomitant]
     Active Substance: CRANBERRY
     Indication: BLADDER DISORDER
     Route: 048
  27. RANITIDINE. [Concomitant]
     Active Substance: RANITIDINE
     Indication: GASTROINTESTINAL DISORDER
     Dosage: 150.0MG AS REQUIRED
     Route: 048
  28. RANITIDINE. [Concomitant]
     Active Substance: RANITIDINE
     Indication: DYSPEPSIA
     Dosage: 150.0MG AS REQUIRED
     Route: 048
  29. B 50 COMPLEX [Concomitant]
     Indication: AUTOIMMUNE DISORDER
     Route: 048

REACTIONS (22)
  - Hunger [Recovering/Resolving]
  - Gestational diabetes [Unknown]
  - Type 2 diabetes mellitus [Not Recovered/Not Resolved]
  - Ill-defined disorder [Unknown]
  - Wrong technique in device usage process [Unknown]
  - Diabetes mellitus inadequate control [Not Recovered/Not Resolved]
  - Decreased appetite [Unknown]
  - Constipation [Not Recovered/Not Resolved]
  - Vitamin D deficiency [Unknown]
  - Drug intolerance [Unknown]
  - Device leakage [Unknown]
  - Product residue present [Not Recovered/Not Resolved]
  - Blood triglycerides increased [Unknown]
  - Weight decreased [Recovered/Resolved]
  - Product closure removal difficult [Unknown]
  - Pollakiuria [Unknown]
  - Mental disorder [Unknown]
  - Vomiting [Unknown]
  - Dyspepsia [Unknown]
  - Autoimmune disorder [Not Recovered/Not Resolved]
  - Gastrointestinal disorder [Unknown]
  - Depression [Unknown]

NARRATIVE: CASE EVENT DATE: 2018
